FAERS Safety Report 22792014 (Version 5)
Quarter: 2024Q3

REPORT INFORMATION
  Report Type: Spontaneous
  Country: CZ (occurrence: CZ)
  Receive Date: 20230807
  Receipt Date: 20240917
  Transmission Date: 20241016
  Serious: Yes (Other)
  Sender: AUROBINDO
  Company Number: CZ-PMCS-2023000508

PATIENT
  Age: 30 Year
  Sex: Female

DRUGS (18)
  1. PREGABALIN [Suspect]
     Active Substance: PREGABALIN
     Indication: Prophylaxis
     Dosage: 75 MILLIGRAM 0.33 DAY
     Route: 065
     Dates: start: 201803, end: 201809
  2. PREGABALIN [Suspect]
     Active Substance: PREGABALIN
     Indication: Migraine
     Dosage: 150 MILLIGRAM, ONCE A DAY
     Route: 065
     Dates: start: 201803, end: 201809
  3. SUMATRIPTAN [Suspect]
     Active Substance: SUMATRIPTAN\SUMATRIPTAN SUCCINATE
     Indication: Migraine
     Dosage: UNK
     Route: 065
  4. IBUPROFEN [Suspect]
     Active Substance: IBUPROFEN
     Indication: Migraine
     Dosage: UNK
     Route: 065
  5. AMITRIPTYLINE [Suspect]
     Active Substance: AMITRIPTYLINE
     Indication: Migraine
     Dosage: 25 MILLIGRAM, ONCE A DAY( (25 MG IN THE EVENING)
     Route: 065
     Dates: start: 202106
  6. BISOPROLOL [Suspect]
     Active Substance: BISOPROLOL\BISOPROLOL FUMARATE
     Indication: Prophylaxis
     Dosage: 5 MILLIGRAM (DOSE REDUCED)
     Route: 065
     Dates: start: 201809, end: 201906
  7. BISOPROLOL [Suspect]
     Active Substance: BISOPROLOL\BISOPROLOL FUMARATE
     Dosage: 10 MILLIGRAM
     Route: 065
     Dates: start: 201809, end: 201906
  8. ELETRIPTAN [Suspect]
     Active Substance: ELETRIPTAN
     Indication: Migraine
     Dosage: UNK
     Route: 065
  9. BISOPROLOL FUMARATE [Suspect]
     Active Substance: BISOPROLOL FUMARATE
     Indication: Migraine
     Dosage: 10 MILLIGRAM
     Route: 048
     Dates: start: 201809, end: 201906
  10. BISOPROLOL FUMARATE [Suspect]
     Active Substance: BISOPROLOL FUMARATE
     Dosage: 5 MILLIGRAM 5 MG (THE DOSE OF 10 MG HAD TO BE REDUCED FOR BRADYCARDIA)
     Route: 048
     Dates: start: 201809, end: 201906
  11. TOPIRAMATE [Suspect]
     Active Substance: TOPIRAMATE
     Indication: Migraine
     Dosage: 100 MILLIGRAM, TWO TIMES A DAY(UP TO 100 MG TWO TIMES DAILY)
     Route: 065
     Dates: start: 201411, end: 202112
  12. AMITRIPTYLINE [Concomitant]
     Active Substance: AMITRIPTYLINE
     Indication: Prophylaxis
     Dosage: 25 MILLIGRAM, ONCE A DAY
     Route: 065
     Dates: start: 20211206
  13. BISOPROLOL [Concomitant]
     Active Substance: BISOPROLOL\BISOPROLOL FUMARATE
     Indication: Bradycardia
     Dosage: 5 MILLIGRAM
     Route: 065
  14. BISOPROLOL [Concomitant]
     Active Substance: BISOPROLOL\BISOPROLOL FUMARATE
     Dosage: 10 MILLIGRAM
     Route: 065
  15. FREMANEZUMAB [Concomitant]
     Active Substance: FREMANEZUMAB
     Indication: Migraine
     Dosage: UNK
     Route: 065
     Dates: start: 201112
  16. TOPIRAMATE [Concomitant]
     Active Substance: TOPIRAMATE
     Indication: Prophylaxis
     Dosage: 200 MILLIGRAM, ONCE A DAY
     Route: 065
     Dates: start: 201411
  17. INDOMETHACIN [Concomitant]
     Active Substance: INDOMETHACIN
     Indication: Migraine
     Dosage: UNK
     Route: 065
  18. NIMESULIDE [Concomitant]
     Active Substance: NIMESULIDE
     Indication: Migraine
     Dosage: UNK
     Route: 065

REACTIONS (9)
  - Bradycardia [Recovered/Resolved]
  - Drug ineffective [Unknown]
  - Mood altered [Recovered/Resolved]
  - Hyperhidrosis [Recovered/Resolved]
  - Nausea [Recovered/Resolved]
  - Mood swings [Recovered/Resolved]
  - Drug ineffective for unapproved indication [Recovered/Resolved]
  - Off label use [Recovered/Resolved]
  - Therapeutic product effect incomplete [Recovered/Resolved]

NARRATIVE: CASE EVENT DATE: 20180301
